FAERS Safety Report 8018658-7 (Version None)
Quarter: 2012Q1

REPORT INFORMATION
  Report Type: 
  Country: None (occurrence: None)
  Receive Date: 20120103
  Receipt Date: 20120103
  Transmission Date: 20120608
  Serious: Yes (Other)
  Sender: FDA-Public Use
  Company Number: None

PATIENT
  Age: 64 Year
  Sex: Female
  Weight: 76.203 kg

DRUGS (4)
  1. EFFEXOR [Concomitant]
  2. TRAMADOL HCL [Concomitant]
  3. TEMAZEPAM [Concomitant]
  4. CYCLOBENZAPRINE [Suspect]
     Indication: NERVE INJURY
     Dosage: 2X 10MGS
     Route: 048
     Dates: start: 20111229, end: 20111229

REACTIONS (6)
  - DIZZINESS [None]
  - CHEST PAIN [None]
  - VOMITING [None]
  - TREMOR [None]
  - HEART RATE INCREASED [None]
  - NAUSEA [None]
